FAERS Safety Report 7798414-5 (Version None)
Quarter: 2011Q4

REPORT INFORMATION
  Report Type: 
  Country: None (occurrence: None)
  Receive Date: 20111005
  Receipt Date: 20110121
  Transmission Date: 20120403
  Serious: No
  Sender: FDA-Public Use
  Company Number: US-BAYER-2011-007870

PATIENT
  Age: 73 Year
  Sex: Male

DRUGS (7)
  1. SIMVASTATIN [Concomitant]
  2. ASPIRIN [Concomitant]
  3. LEVITRA [Suspect]
     Indication: APHRODISIAC THERAPY
     Dosage: 10 MG, UNK
     Route: 048
  4. ALLOPURINOL [Concomitant]
  5. FISH OIL [Concomitant]
     Dosage: UNK
  6. LISINOPRIL [Concomitant]
  7. GLUCOSAMINE [Concomitant]

REACTIONS (1)
  - NO ADVERSE EVENT [None]
